FAERS Safety Report 15186862 (Version 2)
Quarter: 2019Q1

REPORT INFORMATION
  Report Type: Report from Study
  Country: US (occurrence: US)
  Receive Date: 20180723
  Receipt Date: 20190130
  Transmission Date: 20190417
  Serious: No
  Sender: FDA-Public Use
  Company Number: US-EXELIXIS-CABO-18012388

PATIENT
  Sex: Female
  Weight: 70.48 kg

DRUGS (1)
  1. CABOMETYX [Suspect]
     Active Substance: CABOZANTINIB S-MALATE
     Indication: NEUROENDOCRINE TUMOUR
     Dosage: 60 MG, QD
     Route: 048
     Dates: end: 20180209

REACTIONS (7)
  - Red blood cell count decreased [Unknown]
  - Mouth swelling [Unknown]
  - Proteinuria [Unknown]
  - Hypertension [Unknown]
  - Off label use [Unknown]
  - Alopecia [Unknown]
  - Platelet count decreased [Unknown]
